FAERS Safety Report 7559890-6 (Version None)
Quarter: 2011Q2

REPORT INFORMATION
  Report Type: 
  Country: None (occurrence: None)
  Receive Date: 20110614
  Receipt Date: 20110530
  Transmission Date: 20111010
  Serious: Yes (Other)
  Sender: FDA-Public Use
  Company Number: AUR-APL-2011-02286

PATIENT
  Age: 76 Year
  Sex: Female

DRUGS (1)
  1. SIMVASTATIN [Suspect]
     Dosage: 10MG-
     Dates: start: 20010101

REACTIONS (7)
  - BURNING SENSATION [None]
  - LIP DRY [None]
  - ARTHRALGIA [None]
  - TONGUE HAEMORRHAGE [None]
  - DRY MOUTH [None]
  - ARTHROPATHY [None]
  - MUSCLE SPASMS [None]
